FAERS Safety Report 10584244 (Version 1)
Quarter: 2014Q4

REPORT INFORMATION
  Report Type: Spontaneous
  Country: US (occurrence: None)
  Receive Date: 20141113
  Receipt Date: 20141113
  Transmission Date: 20150529
  Serious: Yes (Disabling, Other)
  Sender: FDA-Public Use
  Company Number: None

PATIENT
  Age: 21 Year
  Sex: Male
  Weight: 61.24 kg

DRUGS (1)
  1. PROZAC [Suspect]
     Active Substance: FLUOXETINE HYDROCHLORIDE
     Indication: INSOMNIA
     Dates: start: 20141010, end: 20141101

REACTIONS (2)
  - Legal problem [None]
  - Abnormal behaviour [None]

NARRATIVE: CASE EVENT DATE: 20141101
